FAERS Safety Report 16585526 (Version 2)
Quarter: 2019Q3

REPORT INFORMATION
  Report Type: Spontaneous
  Country: US (occurrence: US)
  Receive Date: 20190717
  Receipt Date: 20190730
  Transmission Date: 20191004
  Serious: No
  Sender: FDA-Public Use
  Company Number: US-VERTEX PHARMACEUTICALS-2019-006455

PATIENT
  Age: 41 Year
  Sex: Male

DRUGS (37)
  1. IPRATROPIUM BROMIDE AND ALBUTEROL SULFATE [Concomitant]
     Active Substance: ALBUTEROL SULFATE\IPRATROPIUM BROMIDE
  2. JANUVIA [Concomitant]
     Active Substance: SITAGLIPTIN PHOSPHATE
  3. MONTELUKAST [Concomitant]
     Active Substance: MONTELUKAST SODIUM
  4. TACROLIMUS. [Concomitant]
     Active Substance: TACROLIMUS
  5. TOBI PODHALER [Concomitant]
     Active Substance: TOBRAMYCIN
  6. SYMDEKO [Suspect]
     Active Substance: IVACAFTOR\TEZACAFTOR
     Indication: CYSTIC FIBROSIS
     Dosage: 1 DOSAGE FORM, TWICE WEEKLY (MON, THUR)
     Route: 048
     Dates: start: 20180504
  7. HYDROCORT [HYDROCORTISONE ACETATE] [Concomitant]
  8. LINZESS [Concomitant]
     Active Substance: LINACLOTIDE
  9. MAGNESIUM OXIDE. [Concomitant]
     Active Substance: MAGNESIUM OXIDE
  10. METOPROLOL TARTRATE. [Concomitant]
     Active Substance: METOPROLOL TARTRATE
  11. MYCOPHENOLATE [Concomitant]
     Active Substance: MYCOPHENOLIC ACID
  12. NOVOLIN N [Concomitant]
     Active Substance: INSULIN HUMAN
  13. NOVOLOG [Concomitant]
     Active Substance: INSULIN ASPART
  14. OMEPRAZOLE. [Concomitant]
     Active Substance: OMEPRAZOLE
  15. TRAMADOL. [Concomitant]
     Active Substance: TRAMADOL
  16. ONDANSETRON [Concomitant]
     Active Substance: ONDANSETRON
  17. PANTOPRAZOLE [Concomitant]
     Active Substance: PANTOPRAZOLE
  18. BUPROPION HYDROCHLORIDE XL [Concomitant]
     Active Substance: BUPROPION HYDROCHLORIDE
  19. FLUDROCORTISON [Concomitant]
     Active Substance: FLUDROCORTISONE
  20. METAMUCIL CITRON [Concomitant]
  21. ZOLPIDEM [Concomitant]
     Active Substance: ZOLPIDEM TARTRATE
  22. ATOVAQUONE. [Concomitant]
     Active Substance: ATOVAQUONE
  23. AZITHROMYCIN ANHYDROUS. [Concomitant]
     Active Substance: AZITHROMYCIN ANHYDROUS
  24. MOMETASONE [Concomitant]
     Active Substance: MOMETASONE
  25. SENEXON-S [Concomitant]
     Active Substance: DOCUSATE SODIUM\SENNOSIDES A AND B
  26. PREDNISONE. [Concomitant]
     Active Substance: PREDNISONE
  27. PULMOZYME [Concomitant]
     Active Substance: DORNASE ALFA
  28. SMZ-TMP [Concomitant]
     Active Substance: SULFAMETHOXAZOLE\TRIMETHOPRIM
  29. VANCOMYCIN [Concomitant]
     Active Substance: VANCOMYCIN
  30. XARELTO [Concomitant]
     Active Substance: RIVAROXABAN
  31. VALGANCICLOVIR. [Concomitant]
     Active Substance: VALGANCICLOVIR
  32. ADVAIR HFA [Concomitant]
     Active Substance: FLUTICASONE PROPIONATE\SALMETEROL XINAFOATE
  33. CLONAZEPAM. [Concomitant]
     Active Substance: CLONAZEPAM
  34. NOXAFIL [Concomitant]
     Active Substance: POSACONAZOLE
  35. OYSCO 500+D [Concomitant]
  36. POLYETHYLENE GLYCOL [Concomitant]
     Active Substance: POLYETHYLENE GLYCOLS
  37. SPS [Concomitant]
     Active Substance: SODIUM POLYSTYRENE SULFONATE

REACTIONS (1)
  - Hyperkalaemia [Unknown]

NARRATIVE: CASE EVENT DATE: 20190701
